FAERS Safety Report 5154215-8 (Version None)
Quarter: 2006Q4

REPORT INFORMATION
  Report Type: 
  Country: None (occurrence: None)
  Receive Date: 20061120
  Receipt Date: 20061106
  Transmission Date: 20070319
  Serious: Yes (Death)
  Sender: FDA-Public Use
  Company Number: VE-ABBOTT-06P-178-0349431-00

PATIENT
  Sex: Female
  Weight: 49 kg

DRUGS (8)
  1. ZEMPLAR [Suspect]
     Indication: HYPERPARATHYROIDISM SECONDARY
     Dosage: AMPULE
     Route: 042
  2. ERITROPOIETIN [Concomitant]
     Indication: ANAEMIA
     Route: 058
  3. FOLIC ACID [Concomitant]
     Indication: VITAMIN SUPPLEMENTATION
     Dosage: 100 MG WEEKLY
     Route: 048
  4. B-KOMPLEX ^LECIVA^ [Concomitant]
     Indication: VITAMIN SUPPLEMENTATION
     Route: 030
  5. CALCIUM CARBONATE [Concomitant]
     Indication: HYPOPHOSPHATAEMIA
     Route: 048
  6. ISOPHANE INSULIN [Concomitant]
     Indication: DIABETES MELLITUS
     Route: 058
  7. INSULIN CRYST [Concomitant]
     Indication: DIABETES MELLITUS
     Route: 058
  8. LOSARTAN POSTASSIUM [Concomitant]
     Indication: HYPERTENSION
     Route: 048

REACTIONS (2)
  - CHOLECYSTITIS [None]
  - SEPTIC SHOCK [None]
